FAERS Safety Report 12130488 (Version 2)
Quarter: 2016Q2

REPORT INFORMATION
  Report Type: Report from Study
  Country: BR (occurrence: BR)
  Receive Date: 20160301
  Receipt Date: 20160506
  Transmission Date: 20160815
  Serious: Yes (Other)
  Sender: FDA-Public Use
  Company Number: BR-BRISTOL-MYERS SQUIBB COMPANY-BMS-2015-079929

PATIENT
  Age: 52 Year
  Sex: Female

DRUGS (4)
  1. NAPROXEN. [Concomitant]
     Active Substance: NAPROXEN
     Indication: PAIN
     Dosage: UNK UNK, PRN
     Route: 065
  2. ARAVA [Concomitant]
     Active Substance: LEFLUNOMIDE
     Indication: PRODUCT USED FOR UNKNOWN INDICATION
     Route: 065
  3. MICARDIS [Concomitant]
     Active Substance: TELMISARTAN
     Indication: PRODUCT USED FOR UNKNOWN INDICATION
     Route: 065
  4. ABATACEPT [Suspect]
     Active Substance: ABATACEPT
     Indication: RHEUMATOID ARTHRITIS
     Dosage: 750 MG, QMO
     Route: 042
     Dates: start: 2015

REACTIONS (16)
  - Oesophageal ulcer [Unknown]
  - Weight decreased [Unknown]
  - Ear infection [Unknown]
  - Oesophagitis [Unknown]
  - White blood cell count [Unknown]
  - Pharyngitis [Unknown]
  - Inflammation [Unknown]
  - Gastritis [Unknown]
  - Nasal discomfort [Unknown]
  - Tooth infection [Unknown]
  - Urinary tract infection [Unknown]
  - Tooth extraction [Unknown]
  - Gastrooesophageal reflux disease [Unknown]
  - Haemoptysis [Unknown]
  - Dyspnoea [Unknown]
  - Epistaxis [Unknown]

NARRATIVE: CASE EVENT DATE: 20151116
